FAERS Safety Report 7429013-2 (Version None)
Quarter: 2011Q2

REPORT INFORMATION
  Report Type: 
  Country: None (occurrence: None)
  Receive Date: 20110418
  Receipt Date: 20110418
  Transmission Date: 20111010
  Serious: Yes (Hospitalization)
  Sender: FDA-Public Use
  Company Number: None

PATIENT
  Sex: Female
  Weight: 59.5 kg

DRUGS (7)
  1. LISINIPRIL [Concomitant]
  2. PRAVACHOL [Concomitant]
  3. GLUCOPHAGE [Concomitant]
  4. OMEPRAZOLE [Concomitant]
  5. CISPLATIN [Suspect]
     Dosage: 47 MG
  6. CETUXIMAB (ERBITUX) [Suspect]
     Dosage: 388 MG
  7. GLIPIZIDE [Concomitant]

REACTIONS (2)
  - DIARRHOEA [None]
  - DRUG INEFFECTIVE [None]
